FAERS Safety Report 5945708-1 (Version None)
Quarter: 2008Q4

REPORT INFORMATION
  Report Type: 
  Country: None (occurrence: None)
  Receive Date: 20081105
  Receipt Date: 20081020
  Transmission Date: 20090506
  Serious: Yes (Other)
  Sender: FDA-Public Use
  Company Number: 001#1#2008-00584

PATIENT
  Age: 84 Year
  Sex: Male

DRUGS (5)
  1. NEUPRO [Suspect]
     Indication: PARKINSON'S DISEASE
     Dosage: 8 MG/24H (8 MG/24H 1 IN 1 DAY(S)) TRANSDERMAL
     Route: 062
     Dates: start: 20070501, end: 20080101
  2. MADOPAR (BENSERAZIDE HYDROCHLORIDE, LEVODOPA) [Concomitant]
  3. PRAMIPEXOLE-DIHYDROCHLORIDE (PRAMIPEXOLE DIHYDROCHLORIDE) [Concomitant]
  4. RIVASTIGMINE TARTRATE [Concomitant]
  5. QUETIAPINE FUMARATE [Concomitant]

REACTIONS (2)
  - APPLICATION SITE ECZEMA [None]
  - TRANSIENT ISCHAEMIC ATTACK [None]
